FAERS Safety Report 4585989-2 (Version None)
Quarter: 2005Q1

REPORT INFORMATION
  Report Type: 
  Country: None (occurrence: None)
  Receive Date: 20050125
  Receipt Date: 20040813
  Transmission Date: 20050727
  Serious: No
  Sender: FDA-Public Use
  Company Number: USA040568360

PATIENT
  Age: 69 Year
  Sex: Female
  Weight: 49 kg

DRUGS (13)
  1. FORTEO [Suspect]
     Indication: OSTEOPOROSIS
     Dosage: 20 UG/1 DAY
     Dates: start: 20030701
  2. EVISTA [Suspect]
     Indication: OSTEOPOROSIS
     Dates: start: 20030201
  3. PRILOSEC [Concomitant]
  4. NEXIUM [Concomitant]
  5. ALLEGRA [Concomitant]
  6. LEVOXYL [Concomitant]
  7. TRANXENE [Concomitant]
  8. AMBIEN [Concomitant]
  9. ESGIC [Concomitant]
  10. CALCIUM CARBONATE [Concomitant]
  11. VITAMIN E [Concomitant]
  12. VITAMIN D [Concomitant]
  13. FOSAMAX [Concomitant]

REACTIONS (5)
  - COUGH [None]
  - INJECTION SITE ERYTHEMA [None]
  - INJECTION SITE HAEMORRHAGE [None]
  - MUSCLE SPASMS [None]
  - OESOPHAGEAL SPASM [None]
